FAERS Safety Report 20787774 (Version 4)
Quarter: 2022Q2

REPORT INFORMATION
  Report Type: Spontaneous
  Country: PL (occurrence: PL)
  Receive Date: 20220505
  Receipt Date: 20220527
  Transmission Date: 20220721
  Serious: Yes (Hospitalization, Other)
  Sender: FDA-Public Use
  Company Number: PL-SUN PHARMACEUTICAL INDUSTRIES LTD-2022RR-335521

PATIENT
  Age: 31 Year
  Sex: Male

DRUGS (7)
  1. TADALAFIL [Interacting]
     Active Substance: TADALAFIL
     Indication: Insomnia
     Dosage: 10 MILLIGRAM, UNK
     Route: 065
  2. ATORVASTATIN [Suspect]
     Active Substance: ATORVASTATIN
     Indication: Tachycardia
     Dosage: 40 MILLIGRAM, UNK
     Route: 048
  3. DICLOFENAC [Suspect]
     Active Substance: DICLOFENAC
     Indication: Back pain
     Dosage: 150 MILLIGRAM, DAILY
     Route: 065
  4. ACETAMINOPHEN\TRAMADOL [Suspect]
     Active Substance: ACETAMINOPHEN\TRAMADOL
     Indication: Back pain
     Dosage: 37.5/325 MG, TWICE A DAY
     Route: 065
  5. SERTRALINE [Interacting]
     Active Substance: SERTRALINE HYDROCHLORIDE
     Indication: Insomnia
     Dosage: 50 MILLIGRAM, IN THE MORNING
     Route: 065
  6. ALPRAZOLAM [Interacting]
     Active Substance: ALPRAZOLAM
     Indication: Insomnia
     Dosage: 1 MILLIGRAM, PER NIGHT
     Route: 065
  7. RAMIPRIL [Concomitant]
     Active Substance: RAMIPRIL
     Indication: Hypertension
     Dosage: 10 MILLIGRAM, UNK
     Route: 065

REACTIONS (6)
  - Drug ineffective [Unknown]
  - Erectile dysfunction [Recovering/Resolving]
  - Anorgasmia [Unknown]
  - Hyperaesthesia [Unknown]
  - Drug interaction [Unknown]
  - Drug level increased [Unknown]
